APPROVED DRUG PRODUCT: NICOTINE POLACRILEX
Active Ingredient: NICOTINE POLACRILEX
Strength: EQ 4MG BASE
Dosage Form/Route: TROCHE/LOZENGE;ORAL
Application: A077007 | Product #002
Applicant: PERRIGO R AND D CO
Approved: Jan 31, 2006 | RLD: No | RS: No | Type: OTC